FAERS Safety Report 7589815-9 (Version None)
Quarter: 2011Q2

REPORT INFORMATION
  Report Type: 
  Country: None (occurrence: None)
  Receive Date: 20110627
  Receipt Date: 20110613
  Transmission Date: 20111010
  Serious: Yes (Hospitalization)
  Sender: FDA-Public Use
  Company Number: JPI-P-015096

PATIENT
  Age: 39 Year
  Sex: Female

DRUGS (1)
  1. XYREM [Suspect]
     Indication: NARCOLEPSY
     Dosage: 4.5 GM (4 .5 GM,1 IN 1 D), ORAL
     Route: 048
     Dates: start: 20110302, end: 20110429

REACTIONS (3)
  - THINKING ABNORMAL [None]
  - SUICIDAL IDEATION [None]
  - HOMICIDAL IDEATION [None]
